FAERS Safety Report 22019159 (Version 1)
Quarter: 2023Q1

REPORT INFORMATION
  Report Type: Spontaneous
  Country: IT (occurrence: IT)
  Receive Date: 20230222
  Receipt Date: 20230222
  Transmission Date: 20230417
  Serious: Yes (Death, Other)
  Sender: FDA-Public Use
  Company Number: IT-AMGEN-ITASP2023029170

PATIENT

DRUGS (3)
  1. CARFILZOMIB [Suspect]
     Active Substance: CARFILZOMIB
     Indication: Plasma cell myeloma
     Dosage: UNK
     Route: 065
  2. DEXAMETHASONE [Suspect]
     Active Substance: DEXAMETHASONE
     Indication: Plasma cell myeloma
     Dosage: UNK
     Route: 065
  3. LENALIDOMIDE [Suspect]
     Active Substance: LENALIDOMIDE
     Indication: Plasma cell myeloma
     Dosage: UNK
     Route: 065

REACTIONS (19)
  - Myocardial strain imaging abnormal [Unknown]
  - Left ventricular hypertrophy [Unknown]
  - Left atrial enlargement [Unknown]
  - Ejection fraction decreased [Unknown]
  - Hypertension [Unknown]
  - Pulmonary hypertension [Unknown]
  - Sudden death [Fatal]
  - Arrhythmia [Unknown]
  - Hypertensive urgency [Unknown]
  - Syncope [Unknown]
  - Plasma cell myeloma [Unknown]
  - Cardiotoxicity [Unknown]
  - Acute coronary syndrome [Unknown]
  - Acute myocardial infarction [Unknown]
  - Chest pain [Unknown]
  - Cardiac failure [Unknown]
  - Arterial stiffness [Unknown]
  - Left ventricular dysfunction [Unknown]
  - Angiopathy [Unknown]
